FAERS Safety Report 24798967 (Version 3)
Quarter: 2025Q2

REPORT INFORMATION
  Report Type: Spontaneous
  Country: TR (occurrence: TR)
  Receive Date: 20250102
  Receipt Date: 20250501
  Transmission Date: 20250716
  Serious: Yes (Death, Hospitalization, Other)
  Sender: ASTELLAS
  Company Number: TR-ASTELLAS-2025-AER-000092

PATIENT
  Age: 71 Year
  Sex: Male

DRUGS (2)
  1. ENFORTUMAB VEDOTIN [Suspect]
     Active Substance: ENFORTUMAB VEDOTIN
     Indication: Product used for unknown indication
     Route: 065
  2. NIVOLUMAB [Concomitant]
     Active Substance: NIVOLUMAB
     Indication: Product used for unknown indication
     Route: 065
     Dates: start: 202307

REACTIONS (14)
  - Hypotension [Fatal]
  - Syncope [Unknown]
  - Hypoxia [Unknown]
  - Renal impairment [Unknown]
  - Shock [Unknown]
  - Pulmonary oedema [Unknown]
  - Pneumonia [Unknown]
  - Interstitial lung disease [Unknown]
  - Dyspnoea [Unknown]
  - Asthenia [Unknown]
  - C-reactive protein increased [Unknown]
  - Pyrexia [Unknown]
  - Cough [Unknown]
  - Breath sounds absent [Unknown]

NARRATIVE: CASE EVENT DATE: 20240701
